FAERS Safety Report 20546678 (Version 1)
Quarter: 2022Q1

REPORT INFORMATION
  Report Type: Spontaneous
  Country: US (occurrence: None)
  Receive Date: 20220302
  Receipt Date: 20220302
  Transmission Date: 20220424
  Serious: Yes (unspecified)
  Sender: FDA-Public Use
  Company Number: None

PATIENT
  Age: 20 Year
  Sex: Female
  Weight: 144.3 kg

DRUGS (2)
  1. VRAYLAR [Suspect]
     Active Substance: CARIPRAZINE
     Indication: Bipolar disorder
     Dates: start: 20220204, end: 20220217
  2. VRAYLAR [Concomitant]
     Active Substance: CARIPRAZINE
     Dates: start: 20220204, end: 20220217

REACTIONS (3)
  - Mania [None]
  - Economic problem [None]
  - Impulsive behaviour [None]

NARRATIVE: CASE EVENT DATE: 20220217
